FAERS Safety Report 5622487-9 (Version None)
Quarter: 2008Q1

REPORT INFORMATION
  Report Type: 
  Country: None (occurrence: None)
  Receive Date: 20080114
  Receipt Date: 20070822
  Transmission Date: 20080703
  Serious: Yes (Other)
  Sender: FDA-Public Use
  Company Number: A03200705310

PATIENT
  Age: 75 Year
  Sex: Male
  Weight: 131.0895 kg

DRUGS (21)
  1. PLAVIX [Suspect]
     Indication: CARDIAC VALVE DISEASE
     Dosage: 75 MG QD - ORAL
     Route: 048
     Dates: start: 20060101, end: 20070501
  2. PLAVIX [Suspect]
     Indication: CARDIOVASCULAR EVENT PROPHYLAXIS
     Dosage: 75 MG QD - ORAL
     Route: 048
     Dates: start: 20060101, end: 20070501
  3. PLAVIX [Suspect]
     Indication: MYOCARDIAL INFARCTION
     Dosage: 75 MG QD - ORAL
     Route: 048
     Dates: start: 20060101, end: 20070501
  4. PLAVIX [Suspect]
     Indication: CARDIAC VALVE DISEASE
     Dosage: 1 TABLET 3 TIMES PER WEEK (MONDAY, WEDNESDAY AND FRIDAYS) - ORAL
     Route: 048
     Dates: start: 20070501
  5. PLAVIX [Suspect]
     Indication: CARDIOVASCULAR EVENT PROPHYLAXIS
     Dosage: 1 TABLET 3 TIMES PER WEEK (MONDAY, WEDNESDAY AND FRIDAYS) - ORAL
     Route: 048
     Dates: start: 20070501
  6. PLAVIX [Suspect]
     Indication: MYOCARDIAL INFARCTION
     Dosage: 1 TABLET 3 TIMES PER WEEK (MONDAY, WEDNESDAY AND FRIDAYS) - ORAL
     Route: 048
     Dates: start: 20070501
  7. WARFARIN SODIUM [Concomitant]
  8. ACETYLSALICYLIC ACID SRT [Concomitant]
  9. METFORMIN HCL [Concomitant]
  10. SOLIFENACIN SUCCINATE [Concomitant]
  11. ALLOPURINOL [Concomitant]
  12. GLYBURIDE [Concomitant]
  13. ESOMEPRAZOLE [Concomitant]
  14. SIMVASTATIN [Concomitant]
  15. CAPTOPRIL [Concomitant]
  16. FUROSEMIDE [Concomitant]
  17. POTASSIUM CHLORIDE [Concomitant]
  18. ALBUTEROL SULFATE AND IPRATROPIUM BROMIDE [Concomitant]
  19. SILDENAFIL CITRATE [Concomitant]
  20. BARLEY GREEN [Concomitant]
  21. GLUCOSAMINE W/CHONDROITIN SULFATES [Concomitant]

REACTIONS (3)
  - BLEEDING TIME PROLONGED [None]
  - CONFUSIONAL STATE [None]
  - MOUTH HAEMORRHAGE [None]
